FAERS Safety Report 25106889 (Version 1)
Quarter: 2025Q1

REPORT INFORMATION
  Report Type: Spontaneous
  Country: US (occurrence: None)
  Receive Date: 20250321
  Receipt Date: 20250321
  Transmission Date: 20250409
  Serious: Yes (Hospitalization)
  Sender: FDA-CTU
  Company Number: None

PATIENT
  Age: 60 Year
  Sex: Female

DRUGS (1)
  1. KESIMPTA [Suspect]
     Active Substance: OFATUMUMAB
     Indication: Multiple sclerosis
     Dosage: 20MG WEEK 1 DOSE ?

REACTIONS (7)
  - Multiple sclerosis relapse [None]
  - Intervertebral disc protrusion [None]
  - Fatigue [None]
  - Back pain [None]
  - Neck pain [None]
  - Arthralgia [None]
  - Iron deficiency anaemia [None]
